FAERS Safety Report 6209133-0 (Version None)
Quarter: 2009Q2

REPORT INFORMATION
  Report Type: 
  Country: None (occurrence: None)
  Receive Date: 20090522
  Receipt Date: 20090211
  Transmission Date: 20091009
  Serious: No
  Sender: FDA-Public Use
  Company Number: 8041065

PATIENT
  Age: 41 Year
  Sex: Male
  Weight: 97.3 kg

DRUGS (2)
  1. CIMZIA [Suspect]
     Indication: CROHN'S DISEASE
     Dosage: 400 MG SC
     Route: 058
     Dates: start: 20090108
  2. ENTOCORT EC [Concomitant]

REACTIONS (3)
  - COUGH [None]
  - INJECTION SITE REACTION [None]
  - POSTNASAL DRIP [None]
